FAERS Safety Report 9367670 (Version 2)
Quarter: 2013Q3

REPORT INFORMATION
  Report Type: Report from Study
  Country: JP (occurrence: JP)
  Receive Date: 20130625
  Receipt Date: 20130912
  Transmission Date: 20140515
  Serious: Yes (Other)
  Sender: FDA-Public Use
  Company Number: PHHY2013JP041335

PATIENT
  Age: 54 Year
  Sex: Female

DRUGS (11)
  1. AFINITOR [Suspect]
     Indication: PANCREATIC NEUROENDOCRINE TUMOUR
     Dosage: 10 MG, DAILY
     Route: 048
     Dates: start: 20120201, end: 20120814
  2. AFINITOR [Suspect]
     Dosage: 5 MG, DAILY
     Route: 048
     Dates: start: 20120828, end: 20120903
  3. AFINITOR [Suspect]
     Dosage: 10 MG, DAILY
     Route: 048
     Dates: start: 20120904
  4. SANDOSTATIN LAR [Concomitant]
     Indication: PANCREATIC NEUROENDOCRINE TUMOUR
     Route: 030
  5. BLOPRESS [Concomitant]
     Dosage: 16 MG
     Route: 048
  6. NORVASC [Concomitant]
     Dosage: 10 MG
     Route: 048
  7. ALOSITOL [Concomitant]
     Dosage: 100 MG
     Route: 048
  8. BEZATOL SR [Concomitant]
     Indication: PROPHYLAXIS
     Dosage: 400 MG, UNK
     Route: 048
     Dates: start: 20120214, end: 20121015
  9. LIPITOR [Concomitant]
     Indication: PROPHYLAXIS
     Dosage: 10 MG
     Route: 048
     Dates: start: 20120410
  10. LIPITOR [Concomitant]
     Dosage: 20 MG
     Route: 048
  11. LENDORMIN [Concomitant]
     Indication: PROPHYLAXIS
     Dosage: 0.25 MG
     Route: 048
     Dates: start: 20120612

REACTIONS (8)
  - Gamma-glutamyltransferase increased [Recovering/Resolving]
  - Aspartate aminotransferase increased [Recovering/Resolving]
  - Hyperuricaemia [Recovered/Resolved]
  - Hypophosphataemia [Recovered/Resolved]
  - Blood cholesterol increased [Recovering/Resolving]
  - Lymphopenia [Recovered/Resolved]
  - Alanine aminotransferase increased [Recovered/Resolved]
  - Decreased appetite [Recovered/Resolved]
